FAERS Safety Report 5201337-9 (Version None)
Quarter: 2007Q1

REPORT INFORMATION
  Report Type: 
  Country: None (occurrence: None)
  Receive Date: 20070104
  Receipt Date: 20061227
  Transmission Date: 20070707
  Serious: Yes (Hospitalization)
  Sender: FDA-Public Use
  Company Number: 163-21880-06121195

PATIENT
  Age: 67 Year
  Sex: Female

DRUGS (1)
  1. REVLIMID [Suspect]
     Indication: MULTIPLE MYELOMA
     Dosage: 25 MG, X 21 DAYS, ORAL
     Route: 048
     Dates: start: 20061030

REACTIONS (5)
  - ANURIA [None]
  - CATHETER RELATED INFECTION [None]
  - HYPOCALCAEMIA [None]
  - HYPOKALAEMIA [None]
  - URINARY TRACT INFECTION [None]
